FAERS Safety Report 18661140 (Version 5)
Quarter: 2021Q3

REPORT INFORMATION
  Report Type: Other
  Country: US (occurrence: US)
  Receive Date: 20201224
  Receipt Date: 20210728
  Transmission Date: 20211014
  Serious: Yes (Other)
  Sender: FDA-Public Use
  Company Number: US-ROCHE-2739394

PATIENT
  Age: 65 Year
  Sex: Female
  Weight: 86.26 kg

DRUGS (6)
  1. HYDROCODONE [Concomitant]
     Active Substance: HYDROCODONE
     Indication: PAIN
     Dosage: 10/325, NO MORE THAN 5 A DAY
     Route: 048
  2. OCREVUS [Suspect]
     Active Substance: OCRELIZUMAB
     Indication: RELAPSING-REMITTING MULTIPLE SCLEROSIS
     Dosage: PRESCRIBED WITH 300 MG 1ST DOSE THEN 300 MG 14 DAYS AFTER?STRENGTH: 300 MG/ 10 ML?DATE OF TREATMENT:
     Route: 042
     Dates: start: 20191126
  3. OCREVUS [Suspect]
     Active Substance: OCRELIZUMAB
     Indication: RELAPSING MULTIPLE SCLEROSIS
  4. CYCLOBENZAPRINE. [Concomitant]
     Active Substance: CYCLOBENZAPRINE
     Indication: PAIN
     Dosage: ONE TABLET EVERY 8 HOURS AS NEEDED
     Route: 048
  5. LEVOTHYROXINE. [Concomitant]
     Active Substance: LEVOTHYROXINE
     Route: 048
  6. MORPHINE [Concomitant]
     Active Substance: MORPHINE
     Indication: PAIN
     Dosage: ONE TABLET EVERY 8 HOURS AS NEEDED
     Route: 048

REACTIONS (7)
  - Blood cholesterol increased [Unknown]
  - Retinal artery occlusion [Unknown]
  - COVID-19 [Recovered/Resolved]
  - Hypotension [Unknown]
  - Visual impairment [Unknown]
  - Fatigue [Recovered/Resolved]
  - Blood pressure increased [Unknown]

NARRATIVE: CASE EVENT DATE: 202010
